FAERS Safety Report 5001866-7 (Version None)
Quarter: 2006Q2

REPORT INFORMATION
  Report Type: 
  Country: None (occurrence: None)
  Receive Date: 20060515
  Receipt Date: 20060505
  Transmission Date: 20061013
  Serious: Yes (Death, Life-Threatening)
  Sender: FDA-Public Use
  Company Number: GB-JNJFOC-20060501476

PATIENT
  Sex: Male
  Weight: 53 kg

DRUGS (14)
  1. REMICADE [Suspect]
     Indication: RHEUMATOID ARTHRITIS
     Route: 042
  2. SULFASALAZINE [Concomitant]
     Route: 065
  3. METHOTREXATE [Concomitant]
     Route: 065
  4. PREDNISOLONE [Concomitant]
     Route: 065
  5. ASPIRIN [Concomitant]
     Route: 065
  6. ATENOLOL [Concomitant]
     Route: 065
  7. CALCICHEW [Concomitant]
     Route: 065
  8. DF118 [Concomitant]
     Route: 065
  9. FOLIC ACID [Concomitant]
     Route: 065
  10. FOSAMAX [Concomitant]
     Route: 065
  11. GTN SPRAY [Concomitant]
     Route: 065
  12. IMDUR [Concomitant]
     Route: 065
  13. INDOMETHACIN [Concomitant]
     Route: 065
  14. RABEPRAZOLE SODIUM [Concomitant]
     Route: 065

REACTIONS (1)
  - DEATH [None]
